FAERS Safety Report 4340982-X (Version None)
Quarter: 2004Q2

REPORT INFORMATION
  Report Type: 
  Country: None (occurrence: None)
  Receive Date: 20040413
  Receipt Date: 20040405
  Transmission Date: 20050107
  Serious: Yes (Hospitalization)
  Sender: FDA-Public Use
  Company Number: 2004SE01924

PATIENT
  Sex: Female

DRUGS (1)
  1. MUNOBAL [Suspect]
     Dosage: 75 MG ONCE PO
     Route: 048

REACTIONS (5)
  - HYPOTENSION [None]
  - INTENTIONAL OVERDOSE [None]
  - LOSS OF CONSCIOUSNESS [None]
  - SELF-MEDICATION [None]
  - SUICIDE ATTEMPT [None]
